FAERS Safety Report 7941840-1 (Version None)
Quarter: 2011Q4

REPORT INFORMATION
  Report Type: 
  Country: None (occurrence: None)
  Receive Date: 20111122
  Receipt Date: 20111122
  Transmission Date: 20120403
  Serious: No
  Sender: FDA-Public Use
  Company Number: None

PATIENT
  Age: 42 Year
  Sex: Female

DRUGS (7)
  1. BUDESONIDE [Concomitant]
  2. HYDROCHLOROTHIAZIDE [Concomitant]
  3. LEVONORGESTREL + ETHINYL ESTRADIOL [Concomitant]
  4. AMPYRA [Suspect]
     Indication: MULTIPLE SCLEROSIS
     Dosage: 10 MG Q12H ORALLY
     Route: 048
  5. LORAZEPAM [Concomitant]
  6. BACLOREN [Concomitant]
  7. POTASSIUM CHLORIDE [Concomitant]

REACTIONS (1)
  - DRUG EFFECT DECREASED [None]
